FAERS Safety Report 7465004-3 (Version None)
Quarter: 2011Q2

REPORT INFORMATION
  Report Type: 
  Country: None (occurrence: None)
  Receive Date: 20110505
  Receipt Date: 20110505
  Transmission Date: 20111010
  Serious: No
  Sender: FDA-Public Use
  Company Number: None

PATIENT
  Sex: Female
  Weight: 68.2 kg

DRUGS (2)
  1. ARTHROTEC [Suspect]
     Indication: ARTHRITIS
     Dosage: 75MG/200MG 2X OVER 30 YEARS
     Dates: end: 20110427
  2. ARTHROTEC [Suspect]

REACTIONS (3)
  - ABDOMINAL PAIN UPPER [None]
  - PRODUCT SUBSTITUTION ISSUE [None]
  - ECONOMIC PROBLEM [None]
